FAERS Safety Report 5520209-3 (Version None)
Quarter: 2007Q4

REPORT INFORMATION
  Report Type: 
  Country: None (occurrence: None)
  Receive Date: 20071116
  Receipt Date: 20071108
  Transmission Date: 20080405
  Serious: Yes (Hospitalization)
  Sender: FDA-Public Use
  Company Number: SE-ABBOTT-07P-150-0423992-00

PATIENT
  Sex: Female

DRUGS (4)
  1. ERGENYL [Suspect]
     Indication: EPILEPSY
     Dosage: 600 MG IN THE MORNING, 900 MG IN THE EVENING
     Route: 048
  2. LAMOTRIGINE [Interacting]
     Indication: EPILEPSY
     Route: 048
     Dates: start: 20070501, end: 20070801
  3. LOSARTAN POTASSIUM [Concomitant]
     Indication: DRUG USE FOR UNKNOWN INDICATION
     Route: 065
  4. AMLODIPINE [Concomitant]
     Indication: DRUG USE FOR UNKNOWN INDICATION
     Route: 065

REACTIONS (8)
  - BALANCE DISORDER [None]
  - COORDINATION ABNORMAL [None]
  - DRUG INTERACTION [None]
  - EXTRAPYRAMIDAL DISORDER [None]
  - FALL [None]
  - INCONTINENCE [None]
  - PARKINSONISM [None]
  - URINARY TRACT INFECTION [None]
